FAERS Safety Report 16660714 (Version 3)
Quarter: 2019Q3

REPORT INFORMATION
  Report Type: Spontaneous
  Country: JP (occurrence: JP)
  Receive Date: 20190802
  Receipt Date: 20190822
  Transmission Date: 20191004
  Serious: Yes (Death)
  Sender: FDA-Public Use
  Company Number: JP-CELGENEUS-JPN-20190710892

PATIENT
  Age: 8 Decade
  Sex: Male

DRUGS (1)
  1. VIDAZA [Suspect]
     Active Substance: AZACITIDINE
     Indication: MYELODYSPLASTIC SYNDROME
     Dosage: 100 MILLIGRAM
     Route: 065

REACTIONS (2)
  - Pancytopenia [Fatal]
  - Therapeutic product effect incomplete [Unknown]
